FAERS Safety Report 7631438-7 (Version None)
Quarter: 2011Q3

REPORT INFORMATION
  Report Type: 
  Country: None (occurrence: None)
  Receive Date: 20110701
  Receipt Date: 20110303
  Transmission Date: 20111222
  Serious: Yes (Disabling)
  Sender: FDA-Public Use
  Company Number: 7045428

PATIENT
  Age: 39 Year
  Sex: Female
  Weight: 69 kg

DRUGS (3)
  1. LISINOPRIL HYDROCHLOROTHIAZIDE (PRINZIDE /00977901/) [Concomitant]
  2. REBIF [Suspect]
     Indication: SECONDARY PROGRESSIVE MULTIPLE SCLEROSIS
     Dosage: 44 MCG, 3 IN 1 WK, SUBCUTANEOUS
     Route: 058
     Dates: start: 20040301
  3. SPIRIVA [Concomitant]

REACTIONS (1)
  - MULTIPLE SCLEROSIS [None]
